FAERS Safety Report 8720977 (Version 2)
Quarter: 2012Q4

REPORT INFORMATION
  Report Type: Report from Study
  Country: JP (occurrence: JP)
  Receive Date: 20120813
  Receipt Date: 20120920
  Transmission Date: 20130627
  Serious: Yes (Other)
  Sender: FDA-Public Use
  Company Number: JP-009507513-1208JPN005059

PATIENT
  Age: 50 Year
  Sex: Male
  Weight: 67 kg

DRUGS (21)
  1. PEGINTRON [Suspect]
     Indication: HEPATITIS C
     Dosage: 1.5 Microgram per kilogram, qw
     Route: 058
     Dates: start: 20120117, end: 20120221
  2. PEGINTRON [Suspect]
     Dosage: 1.3 Microgram per kilogram, qw
     Route: 058
     Dates: start: 20120228, end: 20120306
  3. PEGINTRON [Suspect]
     Dosage: 1.5 Microgram per kilogram, qw
     Route: 058
     Dates: start: 20120313, end: 20120410
  4. PEGINTRON [Suspect]
     Dosage: 0.75 Microgram per kilogram, qw
     Route: 058
     Dates: start: 20120417, end: 20120417
  5. PEGINTRON [Suspect]
     Dosage: 0.45 Microgram per kilogram, qw
     Route: 058
     Dates: start: 20120424, end: 20120424
  6. PEGINTRON [Suspect]
     Dosage: 0.75 Microgram per kilogram, qw
     Route: 058
     Dates: start: 20120501, end: 20120501
  7. PEGINTRON [Suspect]
     Dosage: 1.3 Microgram per kilogram, qw
     Route: 058
     Dates: start: 20120508, end: 20120508
  8. PEGINTRON [Suspect]
     Dosage: 1.4 Microgram per kilogram, qw
     Route: 058
     Dates: start: 20120515, end: 20120515
  9. PEGINTRON [Suspect]
     Dosage: 1.5 Microgram per kilogram, qw
     Route: 058
     Dates: start: 20120522, end: 20120626
  10. PEGINTRON [Suspect]
     Dosage: 0.45 Microgram per kilogram, qw
     Route: 058
     Dates: start: 20120424, end: 20120424
  11. REBETOL [Suspect]
     Indication: HEPATITIS C
     Dosage: 800 mg, qd
     Route: 048
     Dates: start: 20120117
  12. REBETOL [Suspect]
     Dosage: 600 mg, qd
     Route: 048
     Dates: start: 20120327, end: 20120409
  13. REBETOL [Suspect]
     Dosage: 200 mg, qd
     Route: 048
     Dates: start: 20120410, end: 20120424
  14. REBETOL [Suspect]
     Dosage: 200 mg, qd
     Route: 048
     Dates: start: 20120501, end: 20120507
  15. REBETOL [Suspect]
     Dosage: 200 mg, qd
     Route: 048
     Dates: start: 20120508, end: 20120514
  16. REBETOL [Suspect]
     Dosage: 400 mg, qd
     Route: 048
     Dates: start: 20120515, end: 20120521
  17. REBETOL [Suspect]
     Dosage: 600 mg, qd
     Route: 048
     Dates: start: 20120522, end: 20120702
  18. TELAVIC [Suspect]
     Indication: HEPATITIS C
     Dosage: 2250 mg, qd
     Route: 048
     Dates: start: 20120117, end: 20120119
  19. TELAVIC [Suspect]
     Dosage: 1500 mg, qd
     Route: 048
     Dates: start: 20120120, end: 20120120
  20. TELAVIC [Suspect]
     Dosage: 2250 mg, qd
     Route: 048
     Dates: start: 20120121, end: 20120410
  21. GASPORT D [Concomitant]
     Indication: PROPHYLAXIS
     Dosage: 20 mg, qd
     Route: 048
     Dates: start: 20120117, end: 20120206

REACTIONS (24)
  - Haemoglobin decreased [Not Recovered/Not Resolved]
  - Hyperuricaemia [Recovered/Resolved]
  - Pyrexia [None]
  - Pruritus [None]
  - Erythema [None]
  - Rash [None]
  - Drug eruption [None]
  - Decreased appetite [None]
  - Somnolence [None]
  - Headache [None]
  - Abdominal distension [None]
  - Weight decreased [None]
  - Platelet count decreased [None]
  - Dyspnoea [None]
  - Haemoglobin decreased [None]
  - White blood cell count decreased [None]
  - Treatment noncompliance [None]
  - Drug dose omission [None]
  - Insomnia [None]
  - Nausea [None]
  - Malaise [None]
  - Hypophagia [None]
  - Gait disturbance [None]
  - Inadequate analgesia [None]
